FAERS Safety Report 18226269 (Version 1)
Quarter: 2020Q3

REPORT INFORMATION
  Report Type: Spontaneous
  Country: US (occurrence: US)
  Receive Date: 20200902
  Receipt Date: 20200902
  Transmission Date: 20201103
  Serious: No
  Sender: FDA-Public Use
  Company Number: None

PATIENT
  Age: 75 Year
  Sex: Female
  Weight: 86.85 kg

DRUGS (6)
  1. COZAAR [Concomitant]
     Active Substance: LOSARTAN POTASSIUM
  2. WOMENS ONE A DAY [Concomitant]
  3. BRIMONIDINE TARTRATE OPHTHALMIC SOUTION 0.15%, STERILE INITIAL U.S. [Suspect]
     Active Substance: BRIMONIDINE TARTRATE
     Indication: OPEN ANGLE GLAUCOMA
     Dosage: ?          QUANTITY:3 DROP(S);?
     Route: 047
     Dates: start: 20180702, end: 20200831
  4. FLONASE [Concomitant]
     Active Substance: FLUTICASONE PROPIONATE
  5. NORVASC [Concomitant]
     Active Substance: AMLODIPINE BESYLATE
  6. VITAMIN D [Concomitant]
     Active Substance: VITAMIN D NOS

REACTIONS (1)
  - Dyspepsia [None]

NARRATIVE: CASE EVENT DATE: 20200301
